FAERS Safety Report 11149010 (Version 1)
Quarter: 2015Q2

REPORT INFORMATION
  Report Type: Spontaneous
  Country: GB (occurrence: None)
  Receive Date: 20150527
  Receipt Date: 20150527
  Transmission Date: 20150821
  Serious: Yes (Disabling)
  Sender: FDA-Public Use
  Company Number: DEP_02919_2015

PATIENT
  Age: 56 Year
  Sex: Female
  Weight: 57.15 kg

DRUGS (2)
  1. COCODAMOL [Concomitant]
     Active Substance: ACETAMINOPHEN\CODEINE PHOSPHATE
  2. TAPENTADOL [Suspect]
     Active Substance: TAPENTADOL
     Indication: BACK PAIN
     Route: 048
     Dates: start: 20150508

REACTIONS (2)
  - Depression [None]
  - Tearfulness [None]

NARRATIVE: CASE EVENT DATE: 20150508
